FAERS Safety Report 8665311 (Version 5)
Quarter: 2013Q2

REPORT INFORMATION
  Report Type: Report from Study
  Country: JP (occurrence: JP)
  Receive Date: 20120716
  Receipt Date: 20130618
  Transmission Date: 20140414
  Serious: Yes (Other)
  Sender: FDA-Public Use
  Company Number: JP-JNJFOC-20120303081

PATIENT
  Age: 69 Year
  Sex: Male
  Weight: 82 kg

DRUGS (7)
  1. STELARA [Suspect]
     Indication: PSORIASIS
     Route: 058
     Dates: start: 20111109
  2. STELARA [Suspect]
     Indication: PSORIASIS
     Route: 058
     Dates: start: 20111012
  3. STELARA [Suspect]
     Indication: PSORIASIS
     Route: 058
     Dates: start: 20120606
  4. STELARA [Suspect]
     Indication: PSORIASIS
     Route: 058
     Dates: start: 20120314
  5. MUCODYNE [Concomitant]
     Route: 048
     Dates: start: 20111027
  6. DIACORT [Concomitant]
     Indication: PSORIASIS
     Route: 061
  7. ZYRTEC [Concomitant]
     Indication: PSORIASIS
     Route: 048

REACTIONS (1)
  - Interstitial lung disease [Recovering/Resolving]
